FAERS Safety Report 7213022-2 (Version None)
Quarter: 2011Q1

REPORT INFORMATION
  Report Type: 
  Country: None (occurrence: None)
  Receive Date: 20110106
  Receipt Date: 20101227
  Transmission Date: 20110831
  Serious: Yes (Hospitalization)
  Sender: FDA-Public Use
  Company Number: B0672036A

PATIENT
  Sex: Male

DRUGS (8)
  1. KEPPRA [Suspect]
     Route: 065
     Dates: start: 20091231
  2. OMEPRAZOLE [Concomitant]
     Route: 048
  3. DIAZEPAM [Concomitant]
     Route: 048
  4. SOLIFENACIN SUCCINATE [Concomitant]
  5. TAMSULOSIN HYDROCHLORIDE [Concomitant]
     Dosage: 400MCG PER DAY
  6. LAMOTRIGINE [Suspect]
     Route: 065
     Dates: start: 20100601, end: 20100618
  7. LYRICA [Suspect]
     Dosage: 50MG THREE TIMES PER DAY
     Route: 065
     Dates: end: 20101110
  8. DEXAMETHASONE [Concomitant]
     Route: 048

REACTIONS (6)
  - CONVULSION [None]
  - SYNCOPE [None]
  - PSYCHOTIC DISORDER [None]
  - VISUAL IMPAIRMENT [None]
  - FEELING DRUNK [None]
  - DRUG DISPENSING ERROR [None]
